FAERS Safety Report 5451085-5 (Version None)
Quarter: 2007Q3

REPORT INFORMATION
  Report Type: 
  Country: None (occurrence: None)
  Receive Date: 20070911
  Receipt Date: 20070830
  Transmission Date: 20080115
  Serious: Yes (Death, Hospitalization)
  Sender: FDA-Public Use
  Company Number: UKP07000176

PATIENT
  Age: 81 Year
  Sex: Female
  Weight: 46.7 kg

DRUGS (9)
  1. ACTONEL [Suspect]
     Indication: OSTEOPOROSIS
     Dosage: 5 MG, DAILY, ORAL
     Route: 048
     Dates: start: 20020611, end: 20070502
  2. ALENDRONATE SODIUM [Suspect]
     Indication: OSTEOPOROSIS
     Dosage: 70 MG, 1/WEEK, ORAL
     Route: 048
     Dates: start: 20070502, end: 20070703
  3. ADCAL-D3          (COLECALCIFEROL, CALCIUM CARBONATE) [Concomitant]
  4. ASPIRIN [Concomitant]
  5. DOCUSATE SODIUM                   (DOCUSATE SODIUM) [Concomitant]
  6. IPRATROPIUM BROMIDE [Concomitant]
  7. LACTULOSE [Concomitant]
  8. SENNA                 (SENNA ALEXANDRINA) [Concomitant]
  9. TRIFLUOPERAZINE HCL [Concomitant]

REACTIONS (4)
  - BARRETT'S OESOPHAGUS [None]
  - DYSPHAGIA [None]
  - OESOPHAGITIS [None]
  - REGURGITATION [None]
